FAERS Safety Report 10537765 (Version 3)
Quarter: 2015Q1

REPORT INFORMATION
  Report Type: Report from Study
  Country: US (occurrence: US)
  Receive Date: 20141023
  Receipt Date: 20150306
  Transmission Date: 20150720
  Serious: Yes (Other)
  Sender: FDA-Public Use
  Company Number: US-RB PHARMACEUTICALS LIMITED-RB-72601-2014

PATIENT
  Age: 45 Year
  Sex: Male

DRUGS (8)
  1. SUBOXONE [Suspect]
     Active Substance: BUPRENORPHINE HYDROCHLORIDE\NALOXONE HYDROCHLORIDE
     Indication: DRUG DEPENDENCE
     Dosage: 8 MG, BID
     Route: 060
     Dates: end: 201406
  2. SUBOXONE [Suspect]
     Active Substance: BUPRENORPHINE HYDROCHLORIDE\NALOXONE HYDROCHLORIDE
     Dosage: 3/4TH OF STRIP, BID (TWO WEEKS)
     Route: 060
     Dates: start: 2014, end: 2014
  3. SUBOXONE [Suspect]
     Active Substance: BUPRENORPHINE HYDROCHLORIDE\NALOXONE HYDROCHLORIDE
     Dosage: 1/4TH STRIP, QAM (TWO WEEKS)
     Route: 060
     Dates: start: 2014
  4. SUBOXONE [Suspect]
     Active Substance: BUPRENORPHINE HYDROCHLORIDE\NALOXONE HYDROCHLORIDE
     Dosage: 1/4TH STRIP, BID (TWO WEEKS)
     Route: 060
     Dates: start: 2014
  5. BUPRENORPHINE/NALOXONE BRAND UNSPECIFIED [Suspect]
     Active Substance: BUPRENORPHINE\NALOXONE
     Indication: DRUG DEPENDENCE
     Dosage: 8 MG, BID
     Route: 060
     Dates: start: 2009
  6. SUBOXONE [Suspect]
     Active Substance: BUPRENORPHINE HYDROCHLORIDE\NALOXONE HYDROCHLORIDE
     Indication: DRUG DEPENDENCE
     Dosage: 2 MG, QID
     Route: 060
     Dates: start: 2014
  7. SUBOXONE [Suspect]
     Active Substance: BUPRENORPHINE HYDROCHLORIDE\NALOXONE HYDROCHLORIDE
     Dosage: TAPERED DOSES, CUT THE FILM
     Route: 060
     Dates: start: 201406, end: 20141005
  8. SUBOXONE [Suspect]
     Active Substance: BUPRENORPHINE HYDROCHLORIDE\NALOXONE HYDROCHLORIDE
     Dosage: 1/2 STRIP, BID (TWO WEEKS)
     Route: 060
     Dates: start: 2014, end: 2014

REACTIONS (17)
  - Hyperhidrosis [Recovering/Resolving]
  - Suicidal ideation [Not Recovered/Not Resolved]
  - Formication [Not Recovered/Not Resolved]
  - Dysphoria [Recovering/Resolving]
  - Drug withdrawal syndrome [Not Recovered/Not Resolved]
  - Drug prescribing error [Recovered/Resolved]
  - Restlessness [Recovering/Resolving]
  - Depression [Not Recovered/Not Resolved]
  - Wrong technique in drug usage process [Recovered/Resolved]
  - Yawning [Recovering/Resolving]
  - Blood pressure increased [Not Recovered/Not Resolved]
  - Insomnia [Recovering/Resolving]
  - Dizziness [Recovering/Resolving]
  - Headache [Recovering/Resolving]
  - Sneezing [Recovering/Resolving]
  - Anxiety [Recovering/Resolving]
  - Flushing [Recovering/Resolving]

NARRATIVE: CASE EVENT DATE: 201406
